FAERS Safety Report 4959604-X (Version None)
Quarter: 2006Q1

REPORT INFORMATION
  Report Type: 
  Country: None (occurrence: None)
  Receive Date: 20060324
  Receipt Date: 20060309
  Transmission Date: 20060701
  Serious: Yes (Death)
  Sender: FDA-Public Use
  Company Number: 2006S1001496

PATIENT
  Age: 48 Year
  Sex: Male

DRUGS (12)
  1. CLOZAPINE [Suspect]
     Dosage: 100 MG; QAM; ORAL;  200 MG; HS; ORAL
     Route: 048
     Dates: start: 20000601
  2. CLOZAPINE [Suspect]
     Dosage: 100 MG; QAM; ORAL;  200 MG; HS; ORAL
     Route: 048
     Dates: start: 20000601
  3. VENLAFAXINE HCL [Concomitant]
  4. PHENYTOIN [Concomitant]
  5. VERAPAMIL [Concomitant]
  6. HYDROXYZINE [Concomitant]
  7. ZOLPIDEM TARTRATE [Concomitant]
  8. TOPIRAMATE [Concomitant]
  9. ARIPIPRAZOLE [Concomitant]
  10. FENOFIBRATE [Concomitant]
  11. METFORMIN [Concomitant]
  12. PROPRANOLOL [Concomitant]

REACTIONS (1)
  - ROAD TRAFFIC ACCIDENT [None]
